FAERS Safety Report 4818128-0 (Version None)
Quarter: 2005Q4

REPORT INFORMATION
  Report Type: 
  Country: None (occurrence: None)
  Receive Date: 20051102
  Receipt Date: 20051012
  Transmission Date: 20060501
  Serious: Yes (Other)
  Sender: FDA-Public Use
  Company Number: US-MERCK-0510USA09076

PATIENT
  Age: 46 Year

DRUGS (1)
  1. TIAMATE [Suspect]
     Route: 048

REACTIONS (2)
  - HEART RATE DECREASED [None]
  - OVERDOSE [None]
